FAERS Safety Report 25748569 (Version 3)
Quarter: 2025Q3

REPORT INFORMATION
  Report Type: Spontaneous
  Country: US (occurrence: US)
  Receive Date: 20250902
  Receipt Date: 20250915
  Transmission Date: 20251020
  Serious: No
  Sender: SANOFI AVENTIS
  Company Number: US-SA-2025SA260373

PATIENT
  Age: 50 Year
  Sex: Female
  Weight: 69.09 kg

DRUGS (10)
  1. DUPIXENT [Suspect]
     Active Substance: DUPILUMAB
     Indication: Urticaria
     Route: 058
     Dates: start: 20250826, end: 20250826
  2. DUPIXENT [Suspect]
     Active Substance: DUPILUMAB
     Indication: Dermatitis atopic
     Dosage: 300 MG, QOW
     Route: 058
     Dates: start: 2025
  3. XOLAIR [Suspect]
     Active Substance: OMALIZUMAB
     Route: 065
  4. BUPRENORPHINE [Concomitant]
     Active Substance: BUPRENORPHINE
  5. OMEGA-3 FATTY ACIDS [Concomitant]
     Active Substance: OMEGA-3 FATTY ACIDS
  6. VITAMIN D NOS [Concomitant]
     Active Substance: CHOLECALCIFEROL\ERGOCALCIFEROL
  7. IRON [Concomitant]
     Active Substance: IRON
  8. LYRICA [Concomitant]
     Active Substance: PREGABALIN
     Indication: Fibromyalgia
  9. CYMBALTA [Concomitant]
     Active Substance: DULOXETINE HYDROCHLORIDE
     Indication: Fibromyalgia
  10. UNSPECIFIED INGREDIENT [Concomitant]
     Active Substance: UNSPECIFIED INGREDIENT

REACTIONS (14)
  - Arthralgia [Not Recovered/Not Resolved]
  - Myalgia [Not Recovered/Not Resolved]
  - Rhinorrhoea [Recovering/Resolving]
  - Pain [Recovering/Resolving]
  - Urticaria [Recovering/Resolving]
  - Fibromyalgia [Not Recovered/Not Resolved]
  - Rash [Recovering/Resolving]
  - Pruritus [Not Recovered/Not Resolved]
  - Somnolence [Not Recovered/Not Resolved]
  - Dysuria [Unknown]
  - Injection site discomfort [Unknown]
  - Erythema [Unknown]
  - Injection site erythema [Unknown]
  - Product use in unapproved indication [Unknown]

NARRATIVE: CASE EVENT DATE: 20250101
